FAERS Safety Report 8481035-9 (Version None)
Quarter: 2012Q3

REPORT INFORMATION
  Report Type: 
  Country: None (occurrence: None)
  Receive Date: 20120702
  Receipt Date: 20120625
  Transmission Date: 20120928
  Serious: Yes (Other)
  Sender: FDA-Public Use
  Company Number: PHEH2012US010583

PATIENT
  Sex: Female

DRUGS (1)
  1. VIVELLE-DOT [Suspect]
     Dosage: 0.05 MG, QW2
     Route: 062
     Dates: end: 20120427

REACTIONS (13)
  - INSOMNIA [None]
  - NIGHT SWEATS [None]
  - WEIGHT DECREASED [None]
  - BACK PAIN [None]
  - DRUG INEFFECTIVE [None]
  - FATIGUE [None]
  - WRONG TECHNIQUE IN DRUG USAGE PROCESS [None]
  - MULTIPLE SCLEROSIS [None]
  - MENOPAUSAL SYMPTOMS [None]
  - CYSTOCELE [None]
  - ENTEROCELE [None]
  - NAUSEA [None]
  - HOT FLUSH [None]
